FAERS Safety Report 12373159 (Version 1)
Quarter: 2016Q2

REPORT INFORMATION
  Report Type: Spontaneous
  Country: US (occurrence: US)
  Receive Date: 20160516
  Receipt Date: 20160516
  Transmission Date: 20160815
  Serious: Yes (Life-Threatening, Hospitalization)
  Sender: FDA-Public Use
  Company Number: US-OMEROS CORPORATION-2016OME00011

PATIENT
  Age: 6 Week
  Sex: Female

DRUGS (2)
  1. PHENYLEPHRINE [Suspect]
     Active Substance: PHENYLEPHRINE\PHENYLEPHRINE HYDROCHLORIDE
     Indication: INVESTIGATION
     Dosage: 1 DROP IN EACH EYE, ONCE
     Route: 047
  2. TROPICAMIDE. [Suspect]
     Active Substance: TROPICAMIDE
     Indication: INVESTIGATION
     Dosage: 1 DROP IN EACH EYE, ONCE
     Route: 047

REACTIONS (1)
  - Cardio-respiratory arrest [Recovered/Resolved]
